FAERS Safety Report 24924395 (Version 1)
Quarter: 2025Q1

REPORT INFORMATION
  Report Type: Spontaneous
  Country: CA (occurrence: CA)
  Receive Date: 20250204
  Receipt Date: 20250204
  Transmission Date: 20250409
  Serious: Yes (Life-Threatening, Hospitalization)
  Sender: GE HEALTHCARE
  Company Number: CA-GE HEALTHCARE-2025CSU001292

PATIENT
  Age: 55 Year
  Sex: Female

DRUGS (11)
  1. VISIPAQUE [Suspect]
     Active Substance: IODIXANOL
     Indication: Computerised tomogram
     Route: 042
  2. BACLOFEN [Concomitant]
     Active Substance: BACLOFEN
  3. CLONAZEPAM [Concomitant]
     Active Substance: CLONAZEPAM
  4. CYCLOBENZAPRINE [Concomitant]
     Active Substance: CYCLOBENZAPRINE
  5. DEXILANT [Concomitant]
     Active Substance: DEXLANSOPRAZOLE
  6. ESCITALOPRAM [Concomitant]
     Active Substance: ESCITALOPRAM OXALATE
  7. FLORINEF ACETATE [Concomitant]
     Active Substance: FLUDROCORTISONE ACETATE
  8. KETOPROFEN [Concomitant]
     Active Substance: KETOPROFEN
  9. ESTRADIOL [Concomitant]
     Active Substance: ESTRADIOL
  10. TOPIRAMATE [Concomitant]
     Active Substance: TOPIRAMATE
  11. ZOLMITRIPTAN [Concomitant]
     Active Substance: ZOLMITRIPTAN

REACTIONS (3)
  - Dysphagia [Recovered/Resolved]
  - Urticaria [Recovered/Resolved]
  - Pruritus [Recovered/Resolved]
